FAERS Safety Report 21980824 (Version 1)
Quarter: 2023Q1

REPORT INFORMATION
  Report Type: Report from Study
  Country: US (occurrence: US)
  Receive Date: 20230211
  Receipt Date: 20230211
  Transmission Date: 20230418
  Serious: Yes (Other)
  Sender: FDA-Public Use
  Company Number: US-ABBVIE-4302852

PATIENT
  Age: 57 Year
  Sex: Female

DRUGS (2)
  1. HUMIRA [Suspect]
     Active Substance: ADALIMUMAB
     Indication: Ankylosing spondylitis
     Route: 058
     Dates: start: 20221109
  2. HUMIRA [Suspect]
     Active Substance: ADALIMUMAB
     Route: 058
     Dates: start: 20220801

REACTIONS (3)
  - Hernia [Recovering/Resolving]
  - Appendicectomy [Recovering/Resolving]
  - Alopecia [Unknown]

NARRATIVE: CASE EVENT DATE: 20230117
